FAERS Safety Report 11808601 (Version 1)
Quarter: 2015Q4

REPORT INFORMATION
  Report Type: Spontaneous
  Country: US (occurrence: US)
  Receive Date: 20151207
  Receipt Date: 20151207
  Transmission Date: 20160305
  Serious: No
  Sender: FDA-Public Use
  Company Number: US-ROCHE-1593132

PATIENT
  Age: 65 Year
  Sex: Female
  Weight: 84 kg

DRUGS (6)
  1. PROTONIX (UNITED STATES) [Concomitant]
     Indication: GASTROOESOPHAGEAL REFLUX DISEASE
     Route: 048
  2. HYDROXYZINE [Concomitant]
     Active Substance: HYDROXYZINE\HYDROXYZINE HYDROCHLORIDE
     Indication: ANXIETY
     Route: 048
  3. ATIVAN [Concomitant]
     Active Substance: LORAZEPAM
     Indication: ANXIETY
     Route: 048
  4. ACTEMRA [Suspect]
     Active Substance: TOCILIZUMAB
     Indication: RHEUMATOID ARTHRITIS
     Route: 058
     Dates: start: 20150112
  5. ACTEMRA [Suspect]
     Active Substance: TOCILIZUMAB
     Indication: RHEUMATOID ARTHRITIS
     Route: 042
     Dates: start: 20130729, end: 20150112
  6. AMITIZA [Concomitant]
     Active Substance: LUBIPROSTONE
     Indication: IRRITABLE BOWEL SYNDROME
     Route: 048

REACTIONS (9)
  - Neutrophil count decreased [Not Recovered/Not Resolved]
  - Constipation [Unknown]
  - Abdominal pain [Not Recovered/Not Resolved]
  - Leukopenia [Recovered/Resolved]
  - White blood cell count decreased [Unknown]
  - Gastrooesophageal reflux disease [Not Recovered/Not Resolved]
  - Impaired gastric emptying [Not Recovered/Not Resolved]
  - Headache [Not Recovered/Not Resolved]
  - Metaplasia [Unknown]

NARRATIVE: CASE EVENT DATE: 201404
